FAERS Safety Report 6930062-9 (Version None)
Quarter: 2010Q3

REPORT INFORMATION
  Report Type: 
  Country: None (occurrence: None)
  Receive Date: 20100818
  Receipt Date: 20100809
  Transmission Date: 20110219
  Serious: Yes (Other)
  Sender: FDA-Public Use
  Company Number: DE-NAPPMUNDI-DEU-2010-0006485

PATIENT
  Sex: Male

DRUGS (2)
  1. OXYGESIC 5 MG [Suspect]
     Indication: PAIN
     Dosage: 5 MG, BID
     Route: 048
     Dates: start: 20100806
  2. VALPROAT [Concomitant]

REACTIONS (1)
  - EPILEPSY [None]
